FAERS Safety Report 6147241-3 (Version None)
Quarter: 2009Q2

REPORT INFORMATION
  Report Type: 
  Country: None (occurrence: None)
  Receive Date: 20090408
  Receipt Date: 20090402
  Transmission Date: 20091009
  Serious: Yes (Death, Hospitalization, Other)
  Sender: FDA-Public Use
  Company Number: US-TEVA-190257USA

PATIENT
  Age: 58 Year
  Sex: Female

DRUGS (2)
  1. CARBOPLATIN CONCENTRATE FOR INFUSION 10 MG/ML [Suspect]
     Indication: LUNG NEOPLASM MALIGNANT
     Dates: start: 20080501, end: 20080501
  2. ETOPOSIDE [Suspect]
     Indication: LUNG NEOPLASM MALIGNANT
     Dates: start: 20080501, end: 20080501

REACTIONS (1)
  - SEPTIC SHOCK [None]
